FAERS Safety Report 19258778 (Version 2)
Quarter: 2022Q3

REPORT INFORMATION
  Report Type: Report from Study
  Country: US (occurrence: US)
  Receive Date: 20210514
  Receipt Date: 20220915
  Transmission Date: 20221027
  Serious: No
  Sender: FDA-Public Use
  Company Number: US-KYOWAKIRIN-2021BKK007517

PATIENT

DRUGS (3)
  1. CRYSVITA [Suspect]
     Active Substance: BUROSUMAB-TWZA
     Indication: Hereditary hypophosphataemic rickets
     Dosage: UNK
     Route: 065
     Dates: start: 20200111
  2. CRYSVITA [Suspect]
     Active Substance: BUROSUMAB-TWZA
     Indication: Hereditary hypophosphataemic rickets
     Dosage: 50 MG, 1X/4 WEEKS  (STRENGTH 20 MG/ML AND 30 MG/ ML COMBINED TO ACHIEVE 50 MG)
     Route: 058
     Dates: start: 202003
  3. CRYSVITA [Suspect]
     Active Substance: BUROSUMAB-TWZA
     Indication: Hereditary hypophosphataemic rickets
     Dosage: 50 MG, 1X/4 WEEKS  (STRENGTH 20 MG/ML AND 30 MG/ ML COMBINED TO ACHIEVE 50 MG)
     Route: 058
     Dates: start: 202003

REACTIONS (3)
  - Migraine [Unknown]
  - Pain [Unknown]
  - Osteotomy [Unknown]

NARRATIVE: CASE EVENT DATE: 20220906
